FAERS Safety Report 17671296 (Version 3)
Quarter: 2023Q1

REPORT INFORMATION
  Report Type: Spontaneous
  Country: CA (occurrence: CA)
  Receive Date: 20200415
  Receipt Date: 20230328
  Transmission Date: 20230418
  Serious: Yes (Death, Other)
  Sender: FDA-Public Use
  Company Number: CA-SAMSUNG BIOEPIS-SB-2020-12498

PATIENT
  Age: 62 Year
  Sex: Female

DRUGS (7)
  1. INFLIXIMAB [Suspect]
     Active Substance: INFLIXIMAB
     Indication: Rheumatoid arthritis
     Route: 042
  2. LETROZOLE [Concomitant]
     Active Substance: LETROZOLE
     Indication: Product used for unknown indication
     Dosage: UNKNOWN
     Route: 065
  3. PROLIA [Concomitant]
     Active Substance: DENOSUMAB
     Indication: Product used for unknown indication
     Dosage: UNKNOWN, SOLUTION SUBCUTANEOUS, PRESERVATIVE-FREE
     Route: 065
  4. PROLIA [Concomitant]
     Active Substance: DENOSUMAB
     Dosage: UNKNOWN, PRESERVATIVE FREE
     Route: 065
  5. QUINAPRIL HYDROCHLORIDE [Concomitant]
     Active Substance: QUINAPRIL HYDROCHLORIDE
     Indication: Product used for unknown indication
     Dosage: UNKNOWN
     Route: 065
  6. CHOLECALCIFEROL [Concomitant]
     Active Substance: CHOLECALCIFEROL
     Indication: Product used for unknown indication
     Dosage: UNKNOWN
     Route: 065
  7. PANTOPRAZOLE [Concomitant]
     Active Substance: PANTOPRAZOLE
     Indication: Product used for unknown indication
     Dosage: UNKNOWN
     Route: 065

REACTIONS (9)
  - Infusion site bruising [Fatal]
  - Malaise [Fatal]
  - Pneumonia [Fatal]
  - Rash [Fatal]
  - Eczema [Fatal]
  - Drug effect less than expected [Fatal]
  - Therapeutic response shortened [Fatal]
  - Off label use [Fatal]
  - Product use issue [Fatal]
